FAERS Safety Report 7451060-5 (Version None)
Quarter: 2011Q2

REPORT INFORMATION
  Report Type: 
  Country: None (occurrence: None)
  Receive Date: 20110502
  Receipt Date: 20110426
  Transmission Date: 20111010
  Serious: Yes (Life-Threatening)
  Sender: FDA-Public Use
  Company Number: FR-ROCHE-774100

PATIENT
  Age: 55 Year
  Sex: Female

DRUGS (2)
  1. FLUOROURACIL [Suspect]
     Route: 042
     Dates: start: 20100401, end: 20100418
  2. AVASTIN [Suspect]
     Dosage: AVASTIN 25 MG/ML, SOLUTION
     Route: 042
     Dates: start: 20100401, end: 20100416

REACTIONS (2)
  - ILEAL FISTULA [None]
  - SKIN NECROSIS [None]
